FAERS Safety Report 19272908 (Version 1)
Quarter: 2021Q2

REPORT INFORMATION
  Report Type: Spontaneous
  Country: US (occurrence: US)
  Receive Date: 20210519
  Receipt Date: 20210519
  Transmission Date: 20210717
  Serious: Yes (Hospitalization, Other)
  Sender: FDA-Public Use
  Company Number: US-TEVA-2021-US-1912382

PATIENT
  Age: 52 Year
  Sex: Female

DRUGS (9)
  1. DOXORUBICIN [Suspect]
     Active Substance: DOXORUBICIN
     Indication: ACUTE LYMPHOCYTIC LEUKAEMIA
     Dosage: [HYPERCVAD PART B] THREE CYCLES ALONG WITH A SINGLE CYCLE OF HIGH?DOSE METHOTREXATE AND CYTARABINE
     Route: 065
  2. FLUDARABINE [Suspect]
     Active Substance: FLUDARABINE PHOSPHATE
     Indication: ACUTE LYMPHOCYTIC LEUKAEMIA
     Dosage: CYCLE OF FLUDARABINE, HIGH?DOSE CYTARABINE, IDARUBICIN AND GRANULOCYTE?COLONY STIMULATING FACTOR
     Route: 065
  3. METHOTREXATE. [Suspect]
     Active Substance: METHOTREXATE
     Indication: ACUTE LYMPHOCYTIC LEUKAEMIA
     Dosage: [HYPERCVAD PART B] THREE CYCLES ALONG WITH A SINGLE CYCLE OF HIGH?DOSE METHOTREXATE AND CYTARABINE
     Route: 065
  4. CYTARABINE. [Suspect]
     Active Substance: CYTARABINE
     Dosage: CYCLE OF FLUDARABINE, HIGH?DOSE CYTARABINE, IDARUBICIN AND GRANULOCYTE?COLONY STIMULATING FACTOR
     Route: 065
  5. CYTARABINE. [Suspect]
     Active Substance: CYTARABINE
     Indication: ACUTE LYMPHOCYTIC LEUKAEMIA
     Dosage: [HYPERCVAD PART B] THREE CYCLES ALONG WITH A SINGLE CYCLE OF HIGH?DOSE METHOTREXATE AND CYTARABINE
     Route: 065
  6. VINCRISTINE [Suspect]
     Active Substance: VINCRISTINE
     Indication: ACUTE LYMPHOCYTIC LEUKAEMIA
     Dosage: [HYPERCVAD PART B] THREE CYCLES ALONG WITH A SINGLE CYCLE OF HIGH?DOSE METHOTREXATE AND CYTARABINE
     Route: 065
  7. CYCLOPHOSPHAMIDE. [Suspect]
     Active Substance: CYCLOPHOSPHAMIDE
     Indication: ACUTE LYMPHOCYTIC LEUKAEMIA
     Dosage: [HYPERCVAD PART B] THREE CYCLES ALONG WITH A SINGLE CYCLE OF HIGH?DOSE METHOTREXATE AND CYTARABINE
     Route: 065
  8. DEXAMETHASONE. [Suspect]
     Active Substance: DEXAMETHASONE
     Indication: ACUTE LYMPHOCYTIC LEUKAEMIA
     Dosage: [HYPERCVAD PART B] THREE CYCLES ALONG WITH A SINGLE CYCLE OF HIGH?DOSE METHOTREXATE AND CYTARABINE
     Route: 065
  9. IDARUBICIN [Suspect]
     Active Substance: IDARUBICIN
     Indication: ACUTE LYMPHOCYTIC LEUKAEMIA
     Dosage: CYCLE OF FLUDARABINE, HIGH?DOSE CYTARABINE, IDARUBICIN AND GRANULOCYTE?COLONY STIMULATING FACTOR
     Route: 065

REACTIONS (2)
  - Hepatotoxicity [Unknown]
  - Pneumonia fungal [Unknown]
